FAERS Safety Report 7055375-4 (Version None)
Quarter: 2010Q4

REPORT INFORMATION
  Report Type: 
  Country: None (occurrence: None)
  Receive Date: 20101021
  Receipt Date: 20101008
  Transmission Date: 20110411
  Serious: Yes (Hospitalization, Other)
  Sender: FDA-Public Use
  Company Number: PHEH2006US12237

PATIENT
  Sex: Female
  Weight: 102.49 kg

DRUGS (34)
  1. AREDIA [Suspect]
     Indication: BREAST CANCER
     Dosage: 60MG UNK
  2. ZOMETA [Suspect]
     Indication: METASTASES TO BONE
     Dosage: 2MG IN 100CC NS
  3. NPH INSULIN [Concomitant]
  4. AVANDIA [Concomitant]
  5. BACTRIM [Concomitant]
  6. ASPIRIN [Concomitant]
  7. TOPROL-XL [Concomitant]
  8. XALATAN [Concomitant]
  9. FEMARA [Concomitant]
  10. ALTACE [Concomitant]
  11. M.V.I. [Concomitant]
  12. MOTRIN [Concomitant]
  13. PERCOCET [Concomitant]
  14. OXYCODONE HCL [Concomitant]
  15. ACETAMINOPHEN [Concomitant]
  16. NYSTATIN [Concomitant]
  17. FLUCONAZOLE [Concomitant]
  18. ZOFRAN [Concomitant]
  19. LEVAQUIN [Concomitant]
  20. HYDROCHLOROTHIAZIDE [Concomitant]
  21. VIOXX [Concomitant]
  22. DARVOCET-N 100 [Concomitant]
  23. TIAZAC [Concomitant]
  24. DALMANE [Concomitant]
  25. BETOPTIC [Concomitant]
  26. CARDIZEM CD [Concomitant]
  27. COLACE [Concomitant]
  28. COUMANDIN [Concomitant]
  29. FLORESTOR [Concomitant]
  30. KLOR-CON [Concomitant]
  31. LASIX [Concomitant]
  32. LUMIGAN [Concomitant]
  33. FAMVIR [Concomitant]
  34. NEURONTIN [Concomitant]

REACTIONS (98)
  - ABSCESS [None]
  - ALVEOLOPLASTY [None]
  - ANAEMIA [None]
  - ANXIETY [None]
  - ARTERIOSCLEROSIS [None]
  - ARTHRALGIA [None]
  - ARTHRITIS [None]
  - ASTHENIA [None]
  - ATRIAL FIBRILLATION [None]
  - AZOTAEMIA [None]
  - BLOOD CREATININE INCREASED [None]
  - BLOOD UREA INCREASED [None]
  - BONE DEBRIDEMENT [None]
  - BONE DISORDER [None]
  - BONE LESION [None]
  - BONE MARROW OEDEMA [None]
  - BRADYCARDIA [None]
  - CALCULUS URINARY [None]
  - CARDIAC FAILURE CONGESTIVE [None]
  - CELLULITIS [None]
  - CEREBROVASCULAR ACCIDENT [None]
  - COLON POLYPECTOMY [None]
  - CONFUSIONAL STATE [None]
  - CONSTIPATION [None]
  - COUGH [None]
  - CYSTOCELE REPAIR [None]
  - CYSTOPEXY [None]
  - DECREASED INTEREST [None]
  - DEFORMITY [None]
  - DEHYDRATION [None]
  - DIABETIC NEUROPATHY [None]
  - DYSPNOEA [None]
  - ECCHYMOSIS [None]
  - EMOTIONAL DISTRESS [None]
  - ERYTHEMA [None]
  - FAECALOMA [None]
  - FEELING HOT [None]
  - GAIT DISTURBANCE [None]
  - GASTROINTESTINAL HAEMORRHAGE [None]
  - HAEMATOCRIT DECREASED [None]
  - HAEMOGLOBIN DECREASED [None]
  - HEARING IMPAIRED [None]
  - HYPERCALCAEMIA [None]
  - HYPERLIPIDAEMIA [None]
  - HYPOPHAGIA [None]
  - HYPOTONIA [None]
  - IMPAIRED HEALING [None]
  - INFECTION [None]
  - INFLAMMATION [None]
  - INJURY [None]
  - INTERNATIONAL NORMALISED RATIO INCREASED [None]
  - INTERVERTEBRAL DISC DEGENERATION [None]
  - INTERVERTEBRAL DISC OPERATION [None]
  - LEFT ATRIAL DILATATION [None]
  - LIFE EXPECTANCY SHORTENED [None]
  - LUMBAR SPINAL STENOSIS [None]
  - LYMPHOCYTE COUNT DECREASED [None]
  - MELAENA [None]
  - MEMORY IMPAIRMENT [None]
  - MITRAL VALVE INCOMPETENCE [None]
  - MYOSITIS [None]
  - NAUSEA [None]
  - OBESITY [None]
  - OCCULT BLOOD [None]
  - OEDEMA PERIPHERAL [None]
  - OSTEOMYELITIS [None]
  - OSTEONECROSIS OF JAW [None]
  - PAIN [None]
  - PHYSICAL DISABILITY [None]
  - PNEUMONIA [None]
  - PRIMARY SEQUESTRUM [None]
  - PROTHROMBIN TIME PROLONGED [None]
  - PULMONARY HYPERTENSION [None]
  - PURULENT DISCHARGE [None]
  - RADICULOPATHY [None]
  - RASH [None]
  - RED BLOOD CELL COUNT DECREASED [None]
  - RENAL FAILURE [None]
  - RESTLESSNESS [None]
  - RIGHT ATRIAL DILATATION [None]
  - SKIN CANCER [None]
  - SKIN ULCER [None]
  - SPONDYLOLISTHESIS [None]
  - SQUAMOUS CELL CARCINOMA OF SKIN [None]
  - STAPHYLOCOCCAL INFECTION [None]
  - SUBCUTANEOUS ABSCESS [None]
  - TACHYCARDIA [None]
  - TENDONITIS [None]
  - TENSION [None]
  - TOOTH EXTRACTION [None]
  - TRANSIENT ISCHAEMIC ATTACK [None]
  - TRICUSPID VALVE INCOMPETENCE [None]
  - UNRESPONSIVE TO STIMULI [None]
  - URINARY TRACT INFECTION [None]
  - VASCULAR CALCIFICATION [None]
  - VITAMIN D DEFICIENCY [None]
  - VOMITING [None]
  - WHEEZING [None]
